FAERS Safety Report 5408114-4 (Version None)
Quarter: 2007Q3

REPORT INFORMATION
  Report Type: 
  Country: None (occurrence: None)
  Receive Date: 20070806
  Receipt Date: 20070806
  Transmission Date: 20080115
  Serious: Yes (Hospitalization)
  Sender: FDA-Public Use
  Company Number: None

PATIENT
  Age: 87 Year
  Sex: Male

DRUGS (4)
  1. CEFTRIAXONE [Suspect]
     Indication: ANTIBIOTIC PROPHYLAXIS
     Dosage: 1GM EVERY DAY PO
     Route: 048
     Dates: start: 20070527, end: 20070530
  2. CEFTRIAXONE [Suspect]
     Indication: PROPHYLAXIS
     Dosage: 1GM EVERY DAY PO
     Route: 048
     Dates: start: 20070527, end: 20070530
  3. CEFTRIAXONE [Suspect]
     Indication: UROSEPSIS
     Dosage: 1GM EVERY DAY PO
     Route: 048
     Dates: start: 20070527, end: 20070530
  4. ASPIRIN [Suspect]
     Dosage: 81MG EVERY DAY PO
     Route: 048

REACTIONS (3)
  - ASTHENIA [None]
  - DIARRHOEA [None]
  - HAEMATURIA [None]
